FAERS Safety Report 12606698 (Version 1)
Quarter: 2016Q3

REPORT INFORMATION
  Report Type: Spontaneous
  Country: GB (occurrence: GB)
  Receive Date: 20160729
  Receipt Date: 20160729
  Transmission Date: 20161109
  Serious: Yes (Other)
  Sender: FDA-Public Use
  Company Number: GB-TEVA-678985ACC

PATIENT
  Sex: Male

DRUGS (1)
  1. MORPHINE [Suspect]
     Active Substance: MORPHINE
     Indication: PAIN
     Dosage: DAILY INTAKE GRADUALLY INCREASING
     Route: 065

REACTIONS (8)
  - Neoplasm progression [Unknown]
  - Pneumothorax [Unknown]
  - Metastases to liver [Unknown]
  - Feeding disorder [Unknown]
  - Fluid intake reduced [Unknown]
  - Bedridden [Unknown]
  - Metastases to lung [Unknown]
  - Metastases to spine [Unknown]
